FAERS Safety Report 7617338-7 (Version None)
Quarter: 2011Q3

REPORT INFORMATION
  Report Type: 
  Country: None (occurrence: None)
  Receive Date: 20110718
  Receipt Date: 20110713
  Transmission Date: 20111222
  Serious: Yes (Death, Hospitalization, Other)
  Sender: FDA-Public Use
  Company Number: PHFR2011GB01054

PATIENT
  Sex: Male

DRUGS (5)
  1. CLOZAPINE [Suspect]
     Indication: SCHIZOPHRENIA
     Dosage: UNK
     Route: 048
     Dates: start: 19970204
  2. VITAMIN B-COMPLEX FORTE [Concomitant]
     Dosage: 1 DF, BID
     Route: 048
     Dates: start: 19960101, end: 20100101
  3. ALFUZOSIN HCL [Concomitant]
     Indication: PROSTATISM
     Dosage: 10 MG, DAILY
     Route: 048
     Dates: start: 20100706, end: 20101105
  4. PROCHLORPERAZINE TAB [Concomitant]
     Indication: NAUSEA
     Dosage: 5 MG, TID
     Route: 048
     Dates: start: 20040101, end: 20100101
  5. ACETAMINOPHEN AND CODEINE PHOSPHATE [Concomitant]
     Dosage: UNK
     Route: 048
     Dates: start: 20040618, end: 20100101

REACTIONS (10)
  - HEPATIC NEOPLASM [None]
  - ABDOMINAL DISTENSION [None]
  - ADRENAL NEOPLASM [None]
  - JOINT INJURY [None]
  - THROMBOCYTOPENIA [None]
  - PROSTATISM [None]
  - FALL [None]
  - LUNG CANCER METASTATIC [None]
  - CONFUSIONAL STATE [None]
  - PROTEINURIA [None]
